FAERS Safety Report 4284094-2 (Version None)
Quarter: 2004Q1

REPORT INFORMATION
  Report Type: 
  Country: None (occurrence: None)
  Receive Date: 20040130
  Receipt Date: 20040121
  Transmission Date: 20041129
  Serious: Yes (Hospitalization)
  Sender: FDA-Public Use
  Company Number: 04-000058

PATIENT
  Age: 63 Year
  Sex: Female

DRUGS (1)
  1. DORYX [Suspect]
     Indication: ROSACEA
     Dosage: 100 MG, BID, ORAL
     Route: 048
     Dates: start: 20040107

REACTIONS (1)
  - PANCREATITIS [None]
